FAERS Safety Report 7519649-2 (Version None)
Quarter: 2011Q2

REPORT INFORMATION
  Report Type: 
  Country: None (occurrence: None)
  Receive Date: 20110602
  Receipt Date: 20110412
  Transmission Date: 20111010
  Serious: Yes (Life-Threatening)
  Sender: FDA-Public Use
  Company Number: B0713247A

PATIENT
  Sex: Male
  Weight: 21 kg

DRUGS (17)
  1. SULFAMETHOXAZOLE [Concomitant]
     Dosage: 1G PER DAY
     Route: 048
     Dates: start: 20081120, end: 20081122
  2. CIPROFLOXACIN HCL [Concomitant]
     Dosage: 300MG PER DAY
     Route: 042
     Dates: start: 20081120, end: 20081130
  3. CYTARABINE [Concomitant]
     Indication: STEM CELL TRANSPLANT
     Dosage: 30MG PER DAY
     Route: 042
     Dates: start: 20081121, end: 20081121
  4. POLARAMINE [Concomitant]
     Dosage: .5IUAX PER DAY
     Route: 042
     Dates: start: 20081120, end: 20081123
  5. TACROLIMUS [Concomitant]
     Indication: IMMUNOSUPPRESSION
     Dosage: .4MG PER DAY
     Route: 065
     Dates: start: 20081127
  6. SOLDEM [Concomitant]
     Route: 042
     Dates: start: 20081121, end: 20090107
  7. FULCALIQ [Concomitant]
     Dosage: 1103ML PER DAY
     Route: 042
     Dates: start: 20081121, end: 20090109
  8. METHOTREXATE [Concomitant]
     Indication: IMMUNOSUPPRESSION
     Dosage: 12MG PER DAY
     Route: 065
     Dates: start: 20081130, end: 20081209
  9. ELEMENMIC [Concomitant]
     Dosage: 1ML PER DAY
     Route: 042
     Dates: start: 20081121, end: 20090109
  10. KYTRIL [Concomitant]
     Dosage: 6MG PER DAY
     Route: 042
     Dates: start: 20081121, end: 20081128
  11. URSO 250 [Concomitant]
     Dosage: 200MG TWICE PER DAY
     Route: 048
     Dates: start: 20081121, end: 20081204
  12. TIENAM [Concomitant]
     Route: 042
     Dates: start: 20081120, end: 20081125
  13. TARGOCID [Concomitant]
     Dosage: 200MG PER DAY
     Route: 042
     Dates: start: 20081120, end: 20081125
  14. ALKERAN [Suspect]
     Indication: STEM CELL TRANSPLANT
     Dosage: 60MG PER DAY
     Route: 042
     Dates: start: 20081122, end: 20081123
  15. LORAZEPAM [Concomitant]
     Route: 048
     Dates: start: 20081120, end: 20081230
  16. VFEND [Concomitant]
     Route: 042
     Dates: start: 20081120, end: 20081201
  17. HEPARIN [Concomitant]
     Dosage: 3000IU PER DAY
     Route: 042
     Dates: start: 20081121, end: 20081217

REACTIONS (1)
  - BACTERIAL INFECTION [None]
